FAERS Safety Report 4892462-0 (Version None)
Quarter: 2006Q1

REPORT INFORMATION
  Report Type: 
  Country: None (occurrence: None)
  Receive Date: 20060126
  Receipt Date: 20050124
  Transmission Date: 20060701
  Serious: No
  Sender: FDA-Public Use
  Company Number: US-BRISTOL-MYERS SQUIBB COMPANY-12835112

PATIENT
  Age: 40 Year
  Sex: Male
  Weight: 63 kg

DRUGS (2)
  1. CEFZIL [Suspect]
     Indication: SINUSITIS
     Route: 048
  2. SIMPLY SLEEP TYLENOL [Concomitant]

REACTIONS (3)
  - EXCITABILITY [None]
  - NERVOUSNESS [None]
  - PALPITATIONS [None]
